FAERS Safety Report 24549887 (Version 1)
Quarter: 2024Q4

REPORT INFORMATION
  Report Type: Spontaneous
  Country: US (occurrence: US)
  Receive Date: 20241025
  Receipt Date: 20241025
  Transmission Date: 20250115
  Serious: No
  Sender: PFIZER
  Company Number: US-PFIZER INC-202400284417

PATIENT
  Sex: Female

DRUGS (2)
  1. IBRANCE [Interacting]
     Active Substance: PALBOCICLIB
     Dosage: UNK
  2. ZEPBOUND [Interacting]
     Active Substance: TIRZEPATIDE
     Dosage: UNK

REACTIONS (1)
  - Drug interaction [Unknown]
